FAERS Safety Report 5743962-2 (Version None)
Quarter: 2008Q2

REPORT INFORMATION
  Report Type: 
  Country: None (occurrence: None)
  Receive Date: 20080520
  Receipt Date: 20080513
  Transmission Date: 20081010
  Serious: Yes (Hospitalization)
  Sender: FDA-Public Use
  Company Number: JP-ASTRAZENECA-2008AP00819

PATIENT
  Age: 89 Year
  Sex: Female

DRUGS (9)
  1. OMEPRAZOLE [Suspect]
     Indication: REFLUX OESOPHAGITIS
     Route: 048
     Dates: start: 20071211, end: 20080101
  2. ALENDRONATE SODIUM [Concomitant]
     Route: 048
  3. OLMETEC [Concomitant]
     Route: 048
  4. UNKNOWNDRUG [Concomitant]
  5. TENORMIN [Concomitant]
     Route: 048
  6. ASPIRIN [Concomitant]
     Route: 048
  7. NATRIX [Concomitant]
     Route: 048
  8. CEROCRAL [Concomitant]
     Route: 048
  9. SIGMART [Concomitant]
     Route: 048

REACTIONS (1)
  - HAEMOPHILIA [None]
